FAERS Safety Report 9056634 (Version 1)
Quarter: 2013Q1

REPORT INFORMATION
  Report Type: Spontaneous
  Country: IT (occurrence: IT)
  Receive Date: 20130204
  Receipt Date: 20130204
  Transmission Date: 20140127
  Serious: Yes (Other)
  Sender: FDA-Public Use
  Company Number: PHHY2013IT009007

PATIENT
  Age: 77 Year
  Sex: Male

DRUGS (3)
  1. METOPROLOL [Suspect]
     Dosage: 100 MG, DAILY
     Route: 048
     Dates: start: 20111113, end: 20121112
  2. CARVASIN [Suspect]
     Indication: VERTIGO
     Dosage: 1 DF, POSOLOGICAL UNIT
     Route: 060
     Dates: start: 20121112, end: 20121112
  3. TORVAST [Concomitant]

REACTIONS (3)
  - Vertigo [Not Recovered/Not Resolved]
  - Presyncope [Recovering/Resolving]
  - Sinus bradycardia [Not Recovered/Not Resolved]
